FAERS Safety Report 5629571-4 (Version None)
Quarter: 2008Q1

REPORT INFORMATION
  Report Type: 
  Country: None (occurrence: None)
  Receive Date: 20080213
  Receipt Date: 20080213
  Transmission Date: 20080703
  Serious: No
  Sender: FDA-Public Use
  Company Number: None

PATIENT
  Age: 40 Year
  Sex: Male

DRUGS (1)
  1. MYSOLINE [Suspect]
     Dosage: 250MG  3/D  PO
     Route: 048

REACTIONS (3)
  - DRUG EFFECT DECREASED [None]
  - DRUG LEVEL FLUCTUATING [None]
  - RASH [None]
